FAERS Safety Report 12411645 (Version 2)
Quarter: 2016Q3

REPORT INFORMATION
  Report Type: Report from Study
  Country: CZ (occurrence: CZ)
  Receive Date: 20160527
  Receipt Date: 20160722
  Transmission Date: 20161109
  Serious: Yes (Other)
  Sender: FDA-Public Use
  Company Number: CZ-SUN PHARMACEUTICAL INDUSTRIES LTD-2016R1-117338

PATIENT
  Age: 17 Year
  Sex: Male

DRUGS (4)
  1. CHLORPROTHIXENE [Concomitant]
     Active Substance: CHLORPROTHIXENE
     Indication: PRODUCT USED FOR UNKNOWN INDICATION
     Dosage: 250 MG
     Route: 065
  2. CHLORPROTHIXENE [Concomitant]
     Active Substance: CHLORPROTHIXENE
     Indication: SEVERE MENTAL RETARDATION
  3. OLANZAPINE. [Suspect]
     Active Substance: OLANZAPINE
     Indication: SEVERE MENTAL RETARDATION
     Dosage: 10 MG
     Route: 065
  4. LEVOMEPROMAZINE [Suspect]
     Active Substance: LEVOMEPROMAZINE
     Indication: SEVERE MENTAL RETARDATION
     Dosage: 125 MG
     Route: 065

REACTIONS (2)
  - Embolism venous [Unknown]
  - Sedation [Unknown]
